FAERS Safety Report 22187195 (Version 2)
Quarter: 2023Q2

REPORT INFORMATION
  Report Type: Report from Study
  Country: US (occurrence: US)
  Receive Date: 20230407
  Receipt Date: 20230427
  Transmission Date: 20230722
  Serious: No
  Sender: FDA-Public Use
  Company Number: US-002147023-NVSC2023US081233

PATIENT
  Age: 58 Year
  Sex: Female

DRUGS (5)
  1. COSENTYX [Suspect]
     Active Substance: SECUKINUMAB
     Indication: Psoriasis
     Dosage: UNK
     Route: 065
     Dates: start: 20221018
  2. TRIAMCINOLONE [Suspect]
     Active Substance: TRIAMCINOLONE
     Indication: Psoriasis
     Dosage: UNK
     Route: 061
  3. CLOBETASOL [Suspect]
     Active Substance: CLOBETASOL
     Indication: Psoriasis
     Dosage: UNK
     Route: 061
  4. FLUOCINONIDE [Suspect]
     Active Substance: FLUOCINONIDE
     Indication: Psoriasis
     Dosage: UNK
     Route: 065
  5. CLOBETASOL PROPIONATE [Suspect]
     Active Substance: CLOBETASOL PROPIONATE
     Indication: Psoriasis
     Dosage: UNK
     Route: 061

REACTIONS (18)
  - Macule [Unknown]
  - Haemangioma [Unknown]
  - Papule [Unknown]
  - Xerosis [Unknown]
  - Dry skin [Unknown]
  - Solar dermatitis [Unknown]
  - Skin texture abnormal [Unknown]
  - Discomfort [Unknown]
  - Lentigo [Unknown]
  - Seborrhoeic keratosis [Unknown]
  - Skin wrinkling [Unknown]
  - Blood glucose increased [Unknown]
  - Illness [Unknown]
  - Fatigue [Unknown]
  - Pain [Unknown]
  - Pruritus [Unknown]
  - Psoriasis [Unknown]
  - Drug ineffective [Unknown]

NARRATIVE: CASE EVENT DATE: 20220623
